FAERS Safety Report 9122070 (Version 1)
Quarter: 2013Q1

REPORT INFORMATION
  Report Type: Spontaneous
  Country: FR (occurrence: FR)
  Receive Date: 20130114
  Receipt Date: 20130114
  Transmission Date: 20140127
  Serious: Yes (Other)
  Sender: FDA-Public Use
  Company Number: FR-ASTRAZENECA-2013SE00483

PATIENT
  Age: 723 Month
  Sex: Female

DRUGS (5)
  1. ARIMIDEX [Suspect]
     Route: 048
     Dates: start: 20120411, end: 20120531
  2. EPIRUBICIN [Concomitant]
     Dosage: 3 COURSES
  3. CYCLOPHOSPHAMIDE [Concomitant]
     Dosage: 3 COURSES
  4. 5-FU [Concomitant]
     Dosage: 3 COURSES
  5. TAXOL [Concomitant]
     Dosage: 3 COURSES WEEKLY

REACTIONS (2)
  - Abnormal behaviour [Recovered/Resolved]
  - Feeling abnormal [Recovered/Resolved]
